FAERS Safety Report 20556154 (Version 2)
Quarter: 2022Q1

REPORT INFORMATION
  Report Type: Other
  Country: GB (occurrence: None)
  Receive Date: 20220304
  Receipt Date: 20220309
  Transmission Date: 20220424
  Serious: Yes (Life-Threatening, Hospitalization)
  Sender: FDA-Public Use
  Company Number: GB-MLMSERVICE-20220216-3377256-1

PATIENT
  Age: 11 Year
  Sex: Female

DRUGS (2)
  1. SOMATROPIN [Suspect]
     Active Substance: SOMATROPIN
     Indication: Turner^s syndrome
     Dosage: DOSE NOT REPORTED
     Route: 065
  2. LEVOTHYROXINE [Concomitant]
     Active Substance: LEVOTHYROXINE

REACTIONS (7)
  - Acute kidney injury [Unknown]
  - Metabolic acidosis [Unknown]
  - Blood lactic acid increased [Unknown]
  - Shock [Unknown]
  - Gastrointestinal stromal tumour [Recovered/Resolved]
  - Gastric haemorrhage [Recovered/Resolved]
  - Incorrect dose administered [Unknown]
